FAERS Safety Report 4474312-X (Version None)
Quarter: 2004Q4

REPORT INFORMATION
  Report Type: 
  Country: None (occurrence: None)
  Receive Date: 20041013
  Receipt Date: 20041013
  Transmission Date: 20050328
  Serious: Yes (Hospitalization)
  Sender: FDA-Public Use
  Company Number: None

PATIENT
  Age: 81 Year
  Sex: Male
  Weight: 84.3 kg

DRUGS (8)
  1. ESTRAMUSTINE [Suspect]
     Indication: PROSTATE CANCER
     Dosage: 280 MG D1-3 PO
     Route: 048
     Dates: start: 20040406
  2. ZOLEDRONATE [Suspect]
     Indication: PROSTATE CANCER
     Dosage: 4 MG D2 IV
     Route: 042
     Dates: start: 20040407, end: 20040820
  3. DOCETAXEL [Suspect]
     Indication: PROSTATE CANCER
     Dosage: 70MG/M2 D2 IV
     Route: 042
     Dates: start: 20040407, end: 20040521
  4. ZOLADEX [Concomitant]
  5. ARANCSP [Concomitant]
  6. REMERON [Concomitant]
  7. KLONOPIN [Concomitant]
  8. FLOMAX [Concomitant]

REACTIONS (12)
  - ASTHENIA [None]
  - BLOOD ALKALINE PHOSPHATASE INCREASED [None]
  - BLOOD CALCIUM DECREASED [None]
  - BLOOD GLUCOSE INCREASED [None]
  - BLOOD UREA INCREASED [None]
  - FATIGUE [None]
  - HAEMATOCRIT DECREASED [None]
  - HAEMOGLOBIN DECREASED [None]
  - METASTASES TO BONE [None]
  - PARAESTHESIA [None]
  - PLATELET COUNT INCREASED [None]
  - PROSTATE CANCER METASTATIC [None]
